FAERS Safety Report 23517935 (Version 1)
Quarter: 2024Q1

REPORT INFORMATION
  Report Type: Other
  Country: CA (occurrence: CA)
  Receive Date: 20240213
  Receipt Date: 20240213
  Transmission Date: 20240410
  Serious: Yes (Other)
  Sender: FDA-Public Use
  Company Number: CA-GLENMARK PHARMACEUTICALS-2024GMK088852

PATIENT

DRUGS (3)
  1. EZETIMIBE [Suspect]
     Active Substance: EZETIMIBE
     Indication: Arteriosclerosis
     Dosage: UNK
     Route: 058
  2. ATORVASTATIN CALCIUM [Suspect]
     Active Substance: ATORVASTATIN CALCIUM
     Indication: Arteriosclerosis
     Dosage: 10 MILLIGRAM, 1 EVERY 2 DAY
     Route: 058
  3. LEQVIO [Suspect]
     Active Substance: INCLISIRAN SODIUM
     Indication: Product used for unknown indication
     Dosage: UNK (FORMULATION: SOLUTION SUBCUTANEOUS))
     Route: 065

REACTIONS (8)
  - Blood glucose abnormal [Unknown]
  - Blood potassium abnormal [Unknown]
  - Glycosylated haemoglobin increased [Unknown]
  - Mean cell haemoglobin concentration abnormal [Unknown]
  - Red blood cell count abnormal [Unknown]
  - Serum ferritin abnormal [Unknown]
  - Myalgia [Unknown]
  - Product use in unapproved indication [Unknown]
